FAERS Safety Report 22597661 (Version 1)
Quarter: 2023Q2

REPORT INFORMATION
  Report Type: Spontaneous
  Country: CN (occurrence: None)
  Receive Date: 20230614
  Receipt Date: 20230614
  Transmission Date: 20230721
  Serious: Yes (Other)
  Sender: FDA-Public Use
  Company Number: CN-ROCHE-3363792

PATIENT
  Age: 57 Year
  Sex: Female
  Weight: 70 kg

DRUGS (7)
  1. HERCEPTIN [Suspect]
     Active Substance: TRASTUZUMAB
     Indication: Invasive breast carcinoma
     Route: 065
     Dates: start: 202210
  2. KADCYLA [Suspect]
     Active Substance: ADO-TRASTUZUMAB EMTANSINE
     Indication: Invasive breast carcinoma
     Dosage: 07-MAR-2023,28-MAR-2023
     Route: 065
  3. KADCYLA [Suspect]
     Active Substance: ADO-TRASTUZUMAB EMTANSINE
     Dosage: 18-APR-2023,08-MAY-2023
     Route: 065
  4. KADCYLA [Suspect]
     Active Substance: ADO-TRASTUZUMAB EMTANSINE
     Route: 065
     Dates: start: 20230529
  5. DOXORUBICIN [Concomitant]
     Active Substance: DOXORUBICIN
     Indication: Invasive breast carcinoma
     Dosage: 4 CYCLES
     Dates: start: 202010
  6. CYCLOPHOSPHAMIDE [Concomitant]
     Active Substance: CYCLOPHOSPHAMIDE
     Indication: Invasive breast carcinoma
     Dosage: 4 CYCLES
     Dates: start: 202010
  7. PACLITAXEL [Concomitant]
     Active Substance: PACLITAXEL
     Indication: Invasive breast carcinoma
     Dosage: 4 CYCLES
     Dates: start: 202010

REACTIONS (6)
  - Platelet count decreased [Recovering/Resolving]
  - Injury [Unknown]
  - Nausea [Unknown]
  - Asthenia [Unknown]
  - Discomfort [Unknown]
  - Disease progression [Unknown]

NARRATIVE: CASE EVENT DATE: 20230401
